FAERS Safety Report 11690728 (Version 2)
Quarter: 2015Q4

REPORT INFORMATION
  Report Type: Report from Study
  Country: GR (occurrence: GR)
  Receive Date: 20151102
  Receipt Date: 20151110
  Transmission Date: 20160304
  Serious: Yes (Hospitalization)
  Sender: FDA-Public Use
  Company Number: GR-BRISTOL-MYERS SQUIBB COMPANY-BMS-2015-074441

PATIENT
  Age: 77 Year
  Sex: Female
  Weight: 70 kg

DRUGS (4)
  1. NIVOLUMAB [Suspect]
     Active Substance: NIVOLUMAB
     Dosage: 210 MG, UNK
     Route: 065
     Dates: start: 20150811, end: 20150811
  2. NIVOLUMAB [Suspect]
     Active Substance: NIVOLUMAB
     Indication: MALIGNANT MELANOMA
     Dosage: 210 MG, UNK
     Route: 065
     Dates: start: 20150707, end: 20150707
  3. NIVOLUMAB [Suspect]
     Active Substance: NIVOLUMAB
     Dosage: 202 MG, UNK
     Route: 065
     Dates: start: 20150825, end: 20150825
  4. NIVOLUMAB [Suspect]
     Active Substance: NIVOLUMAB
     Dosage: 210 MG, UNK
     Route: 065
     Dates: start: 20150728, end: 20150728

REACTIONS (1)
  - Jaundice [Recovered/Resolved]

NARRATIVE: CASE EVENT DATE: 20151022
